FAERS Safety Report 8852434 (Version 1)
Quarter: 2012Q4

REPORT INFORMATION
  Report Type: Spontaneous
  Country: US (occurrence: None)
  Receive Date: 20121017
  Receipt Date: 20121017
  Transmission Date: 20130627
  Serious: Yes (Death, Other)
  Sender: FDA-Public Use
  Company Number: 2010003698

PATIENT
  Sex: Male

DRUGS (5)
  1. TARCEVA [Suspect]
     Indication: ADENOID CYSTIC CARCINOMA
     Dosage: UID/
     Route: 048
     Dates: start: 200909, end: 201001
  2. TARCEVA [Suspect]
     Indication: LUNG NEOPLASM MALIGNANT
     Dosage: UID/
     Route: 048
     Dates: start: 200909, end: 201001
  3. VALIUM [Suspect]
     Indication: PRODUCT USED FOR UNKNOWN INDICATION
  4. AVASTIN [Suspect]
     Indication: LUNG NEOPLASM MALIGNANT
  5. ANALGESICS (ANALGESICS) [Concomitant]

REACTIONS (7)
  - Drug ineffective [None]
  - Off label use [None]
  - Disease progression [None]
  - Rash [None]
  - Diarrhoea [None]
  - Dyspnoea [None]
  - Tumour pain [None]
